FAERS Safety Report 8069666-1 (Version None)
Quarter: 2012Q1

REPORT INFORMATION
  Report Type: 
  Country: None (occurrence: None)
  Receive Date: 20120125
  Receipt Date: 20120123
  Transmission Date: 20120608
  Serious: Yes (Disabling)
  Sender: FDA-Public Use
  Company Number: US-PFIZER INC-2012018534

PATIENT
  Sex: Female
  Weight: 99.8 kg

DRUGS (2)
  1. ESTRING [Suspect]
     Indication: HYSTERECTOMY
     Dosage: UNK
     Dates: start: 20090101
  2. PROTONIX [Suspect]
     Indication: ULCER
     Dosage: UNK

REACTIONS (2)
  - MYASTHENIA GRAVIS [None]
  - SYSTEMIC LUPUS ERYTHEMATOSUS [None]
